FAERS Safety Report 5931607-8 (Version None)
Quarter: 2008Q4

REPORT INFORMATION
  Report Type: 
  Country: None (occurrence: None)
  Receive Date: 20081027
  Receipt Date: 20081014
  Transmission Date: 20090506
  Serious: Yes (Hospitalization)
  Sender: FDA-Public Use
  Company Number: ES-ELI_LILLY_AND_COMPANY-ES200810003696

PATIENT
  Age: 80 Year
  Sex: Female

DRUGS (4)
  1. FORTEO [Suspect]
     Indication: OSTEOPOROSIS
     Dosage: 20 UG, UNKNOWN
     Route: 058
     Dates: start: 20080101
  2. FORTEO [Suspect]
     Dosage: 20 UG, UNKNOWN
     Route: 058
  3. ENALAPRIL MALEATE [Concomitant]
     Indication: HYPERTENSION
  4. LEVOTHROID [Concomitant]
     Indication: THYROID DISORDER

REACTIONS (2)
  - FALL [None]
  - SPINAL CORD INJURY [None]
